FAERS Safety Report 9265011 (Version 1)
Quarter: 2013Q2

REPORT INFORMATION
  Report Type: Report from Study
  Country: US (occurrence: US)
  Receive Date: 20130501
  Receipt Date: 20130501
  Transmission Date: 20140414
  Serious: Yes (Other)
  Sender: FDA-Public Use
  Company Number: US-ASTRAZENECA-2013SE29575

PATIENT
  Age: 23271 Day
  Sex: Male

DRUGS (2)
  1. NEXIUM [Suspect]
     Indication: GASTRITIS PROPHYLAXIS
     Route: 048
     Dates: start: 20110521
  2. CELECOXIB [Suspect]
     Indication: OSTEOARTHRITIS
     Route: 048
     Dates: start: 20110521, end: 20111014

REACTIONS (1)
  - Basal cell carcinoma [Unknown]
